FAERS Safety Report 16110629 (Version 2)
Quarter: 2020Q4

REPORT INFORMATION
  Report Type: Other
  Country: US (occurrence: US)
  Receive Date: 20190325
  Receipt Date: 20201116
  Transmission Date: 20210113
  Serious: No
  Sender: FDA-Public Use
  Company Number: US-ROCHE-2283849

PATIENT
  Sex: Female
  Weight: 64.01 kg

DRUGS (6)
  1. WARFARIN [Concomitant]
     Active Substance: WARFARIN
     Dosage: ONGOING: YES
     Route: 048
     Dates: start: 20180705
  2. WARFARIN [Concomitant]
     Active Substance: WARFARIN
     Dosage: 7 TO 9 YEARS AGO STOPPED 7 TO 8 YEARS AGO ;ONGOING: NO
     Route: 048
  3. VITAMIN D3 [Concomitant]
     Active Substance: CHOLECALCIFEROL
     Dosage: ONGOING: YES
     Route: 048
     Dates: start: 201707
  4. OCREVUS [Suspect]
     Active Substance: OCRELIZUMAB
     Indication: RELAPSING-REMITTING MULTIPLE SCLEROSIS
     Dosage: ONGOING: YES
     Route: 042
     Dates: start: 20171018
  5. VITAMIN B12 [Concomitant]
     Active Substance: CYANOCOBALAMIN
     Dosage: DROPPER LIQUID ;ONGOING: YES
     Route: 048
     Dates: start: 201707
  6. MIRENA [Concomitant]
     Active Substance: LEVONORGESTREL

REACTIONS (11)
  - Ear discomfort [Recovered/Resolved]
  - Illness [Recovering/Resolving]
  - Anxiety [Not Recovered/Not Resolved]
  - Upper respiratory tract infection [Recovering/Resolving]
  - Intentional product misuse [Unknown]
  - Secretion discharge [Not Recovered/Not Resolved]
  - Pyrexia [Recovered/Resolved]
  - Dizziness [Not Recovered/Not Resolved]
  - Off label use [Unknown]
  - Immunodeficiency [Not Recovered/Not Resolved]
  - Panic attack [Recovering/Resolving]

NARRATIVE: CASE EVENT DATE: 2018
